FAERS Safety Report 16874450 (Version 2)
Quarter: 2019Q4

REPORT INFORMATION
  Report Type: Spontaneous
  Country: US (occurrence: US)
  Receive Date: 20191001
  Receipt Date: 20191022
  Transmission Date: 20200122
  Serious: Yes (Other)
  Sender: FDA-Public Use
  Company Number: US-GLAXOSMITHKLINE-US2019176263

PATIENT
  Sex: Female

DRUGS (1)
  1. VENTOLIN HFA [Suspect]
     Active Substance: ALBUTEROL SULFATE
     Indication: PRODUCT USED FOR UNKNOWN INDICATION
     Dosage: UNK
     Route: 065
     Dates: start: 2009

REACTIONS (6)
  - Wrong technique in product usage process [Unknown]
  - Stent placement [Unknown]
  - Blood pressure abnormal [Unknown]
  - Wrong technique in device usage process [Unknown]
  - Myocardial infarction [Unknown]
  - Bronchitis viral [Unknown]

NARRATIVE: CASE EVENT DATE: 2016
